FAERS Safety Report 21313536 (Version 6)
Quarter: 2022Q4

REPORT INFORMATION
  Report Type: Spontaneous
  Country: US (occurrence: US)
  Receive Date: 20220909
  Receipt Date: 20221012
  Transmission Date: 20230112
  Serious: No
  Sender: FDA-Public Use
  Company Number: US-JNJFOC-20220857200

PATIENT
  Age: 69 Year
  Sex: Female
  Weight: 68.100 kg

DRUGS (2)
  1. TREMFYA [Suspect]
     Active Substance: GUSELKUMAB
     Indication: Psoriasis
     Route: 065
  2. TREMFYA [Suspect]
     Active Substance: GUSELKUMAB
     Indication: Psoriatic arthropathy
     Route: 065

REACTIONS (5)
  - Product quality issue [Unknown]
  - Product dose omission issue [Unknown]
  - Liquid product physical issue [Unknown]
  - Off label use [Unknown]
  - Device breakage [Unknown]

NARRATIVE: CASE EVENT DATE: 20220826
